FAERS Safety Report 24318648 (Version 1)
Quarter: 2024Q3

REPORT INFORMATION
  Report Type: Spontaneous
  Country: US (occurrence: None)
  Receive Date: 20240913
  Receipt Date: 20240913
  Transmission Date: 20241017
  Serious: Yes (Hospitalization, Other)
  Sender: ASTRAZENECA
  Company Number: 2024A205882

PATIENT
  Age: 75 Year
  Sex: Male
  Weight: 80.7 kg

DRUGS (4)
  1. BREZTRI [Suspect]
     Active Substance: BUDESONIDE\FORMOTEROL\GLYCOPYRROLATE
     Route: 055
  2. VYNDAMAX [Suspect]
     Active Substance: TAFAMIDIS
     Dosage: TAKE 1 CAPSULE BY MOUTH ONCE DAILY FOR 30 DAYS
     Route: 048
  3. TAFAMIDIS [Suspect]
     Active Substance: TAFAMIDIS
     Indication: Cardiac amyloidosis
     Route: 048
  4. TAFAMIDIS [Suspect]
     Active Substance: TAFAMIDIS
     Indication: Heart failure with reduced ejection fraction
     Route: 048

REACTIONS (13)
  - Dyspnoea [Unknown]
  - Pulmonary oedema [Unknown]
  - Cardiac failure congestive [Unknown]
  - Acute myocardial infarction [Unknown]
  - Chronic obstructive pulmonary disease [Unknown]
  - Orthopnoea [Unknown]
  - Abdominal distension [Unknown]
  - Oedema peripheral [Unknown]
  - Dyspnoea paroxysmal nocturnal [Unknown]
  - Decreased appetite [Unknown]
  - Troponin increased [Unknown]
  - Brain natriuretic peptide abnormal [Unknown]
  - Weight abnormal [Unknown]

NARRATIVE: CASE EVENT DATE: 20240401
